FAERS Safety Report 9246270 (Version 6)
Quarter: 2015Q2

REPORT INFORMATION
  Report Type: Spontaneous
  Country: US (occurrence: US)
  Receive Date: 20130422
  Receipt Date: 20150420
  Transmission Date: 20150821
  Serious: No
  Sender: FDA-Public Use
  Company Number: US-009507513-1304USA010989

PATIENT
  Sex: Male
  Weight: 85.35 kg

DRUGS (2)
  1. PROPECIA [Suspect]
     Active Substance: FINASTERIDE
     Indication: ALOPECIA
     Dosage: 1 MG, QD
     Route: 048
     Dates: start: 20081126, end: 20090525
  2. LISINOPRIL. [Concomitant]
     Active Substance: LISINOPRIL
     Indication: HYPERTENSION
     Dosage: UNK
     Dates: start: 1996

REACTIONS (30)
  - Anxiety [Not Recovered/Not Resolved]
  - Painful ejaculation [Unknown]
  - Depression [Not Recovered/Not Resolved]
  - Acne [Unknown]
  - Genital discharge [Unknown]
  - Fatigue [Unknown]
  - Genital pain [Unknown]
  - Genital hypoaesthesia [Unknown]
  - Testicular atrophy [Unknown]
  - Rash [Unknown]
  - Peyronie^s disease [Not Recovered/Not Resolved]
  - Penile size reduced [Unknown]
  - Groin pain [Unknown]
  - Testicular pain [Unknown]
  - Premature ejaculation [Unknown]
  - Hormone level abnormal [Unknown]
  - Sexual dysfunction [Not Recovered/Not Resolved]
  - Erectile dysfunction [Not Recovered/Not Resolved]
  - Penis disorder [Unknown]
  - Brain injury [Unknown]
  - Hypogonadism [Not Recovered/Not Resolved]
  - Speech disorder [Unknown]
  - Prostatitis [Not Recovered/Not Resolved]
  - Decreased interest [Unknown]
  - Cognitive disorder [Not Recovered/Not Resolved]
  - Flat affect [Unknown]
  - Loss of libido [Not Recovered/Not Resolved]
  - Seminal vesiculitis [Unknown]
  - Hypothyroidism [Not Recovered/Not Resolved]
  - Tinnitus [Unknown]

NARRATIVE: CASE EVENT DATE: 200903
